FAERS Safety Report 6696394-7 (Version None)
Quarter: 2010Q2

REPORT INFORMATION
  Report Type: 
  Country: None (occurrence: None)
  Receive Date: 20100422
  Receipt Date: 20100407
  Transmission Date: 20101027
  Serious: Yes (Hospitalization)
  Sender: FDA-Public Use
  Company Number: 009574

PATIENT
  Sex: Female
  Weight: 72 kg

DRUGS (3)
  1. CIMZIA [Suspect]
     Indication: RHEUMATOID ARTHRITIS
     Dosage: 200 MG 1X2 WEEKS, SUBCUTANEOUS
     Route: 058
     Dates: start: 20091218, end: 20100401
  2. METHOTREXATE [Suspect]
     Indication: RHEUMATOID ARTHRITIS
     Dosage: 25 MG WEEKLY, SUBCUTANEOUS
     Route: 058
     Dates: start: 20090618
  3. FOLIC ACID [Concomitant]

REACTIONS (3)
  - DRUG DOSE OMISSION [None]
  - PNEUMONIA [None]
  - PYREXIA [None]
